FAERS Safety Report 10776737 (Version 1)
Quarter: 2015Q1

REPORT INFORMATION
  Report Type: Spontaneous
  Country: KR (occurrence: KR)
  Receive Date: 20150209
  Receipt Date: 20150209
  Transmission Date: 20150721
  Serious: Yes (Death, Other)
  Sender: FDA-Public Use
  Company Number: PHHY2015KR014641

PATIENT
  Age: 11 Year
  Sex: Female

DRUGS (2)
  1. FACTOR VIIA, RECOMBINANT [Concomitant]
     Active Substance: COAGULATION FACTOR VIIA RECOMBINANT HUMAN
     Indication: PULMONARY ALVEOLAR HAEMORRHAGE
     Route: 065
  2. METHYLPREDNISOLONE. [Suspect]
     Active Substance: METHYLPREDNISOLONE
     Indication: PULMONARY ALVEOLAR HAEMORRHAGE
     Route: 065

REACTIONS (3)
  - Respiratory failure [Fatal]
  - Pulmonary fibrosis [Fatal]
  - Pneumonia respiratory syncytial viral [Unknown]
